FAERS Safety Report 8928612 (Version 1)
Quarter: 2012Q4

REPORT INFORMATION
  Report Type: Spontaneous
  Country: US (occurrence: None)
  Receive Date: 20121126
  Receipt Date: 20121126
  Transmission Date: 20130627
  Serious: No
  Sender: FDA-Public Use
  Company Number: None

PATIENT
  Age: 21 Month
  Sex: Female
  Weight: 9.07 kg

DRUGS (1)
  1. FLUOCINOLONE ACETONIDE [Suspect]
     Indication: ECZEMA
     Dosage: sparingly 1-2 x day as need top
     Route: 061

REACTIONS (1)
  - Urticaria [None]
